FAERS Safety Report 18214490 (Version 1)
Quarter: 2020Q3

REPORT INFORMATION
  Report Type: Spontaneous
  Country: BY (occurrence: BY)
  Receive Date: 20200831
  Receipt Date: 20200831
  Transmission Date: 20201103
  Serious: Yes (Other)
  Sender: FDA-Public Use
  Company Number: BY-JNJFOC-20200830058

PATIENT
  Age: 40 Year
  Sex: Male
  Weight: 60 kg

DRUGS (17)
  1. CLOFAZIMINE [Suspect]
     Active Substance: CLOFAZIMINE
     Indication: TUBERCULOSIS
     Route: 048
     Dates: start: 20190513, end: 20200408
  2. PYRIDOXINE [Concomitant]
     Active Substance: PYRIDOXINE
     Dosage: 4 TABLETS IN THE MORNING
     Route: 048
     Dates: start: 20190513
  3. SIRTURO [Suspect]
     Active Substance: BEDAQUILINE FUMARATE
     Indication: TUBERCULOSIS
     Route: 048
     Dates: start: 20190513
  4. DACLATASVIR. [Concomitant]
     Active Substance: DACLATASVIR
     Dosage: ONE TABLET IN THE MORNING
     Route: 048
     Dates: start: 20190627, end: 20190918
  5. LINEZOLID. [Suspect]
     Active Substance: LINEZOLID
     Indication: TUBERCULOSIS
     Route: 048
     Dates: start: 20190513
  6. SOFOSBUVIR [Concomitant]
     Active Substance: SOFOSBUVIR
     Dosage: ONE TABLET IN THE MORNING
     Route: 048
     Dates: start: 20190627, end: 20190918
  7. DOLUTEGRAVIR [Concomitant]
     Active Substance: DOLUTEGRAVIR
     Dosage: ONE TABLET IN THE MORNING
     Route: 048
     Dates: start: 20190725, end: 20190918
  8. NEVIRAPINE. [Concomitant]
     Active Substance: NEVIRAPINE
     Dosage: 300/200, ONE TABLETS IN THE MORNING
     Route: 048
     Dates: start: 20190729
  9. IMIPENEM AND CILASTATIN [Suspect]
     Active Substance: CILASTATIN SODIUM\IMIPENEM
     Indication: TUBERCULOSIS
     Route: 042
     Dates: start: 20191114
  10. DELAMANID [Suspect]
     Active Substance: DELAMANID
     Indication: TUBERCULOSIS
     Route: 048
     Dates: start: 20190513
  11. AMOXICILLIN/CLAVULANIC ACID [Suspect]
     Active Substance: AMOXICILLIN\CLAVULANIC ACID
     Indication: TUBERCULOSIS
     Route: 048
     Dates: start: 20191114
  12. TENOFOVIR DISOPROXIL FUMARATE + EMTRICITABINE [Concomitant]
     Active Substance: EMTRICITABINE\TENOFOVIR DISOPROXIL FUMARATE
     Indication: HIV INFECTION
     Dosage: 300/200, ONE TABLETS IN THE MORNING
     Route: 048
     Dates: start: 20190513, end: 20190621
  13. TENOFOVIR DISOPROXIL FUMARATE + EMTRICITABINE [Concomitant]
     Active Substance: EMTRICITABINE\TENOFOVIR DISOPROXIL FUMARATE
     Dosage: 300/200, ONE TABLETS IN THE MORNING
     Route: 048
     Dates: start: 20190729
  14. EFAVIRENZ. [Concomitant]
     Active Substance: EFAVIRENZ
     Indication: HIV INFECTION
     Dosage: ONE TABLET IN THE MORNING
     Route: 048
     Dates: start: 20190513, end: 20190621
  15. DOLUTEGRAVIR [Concomitant]
     Active Substance: DOLUTEGRAVIR
     Dosage: ONE TABLET IN THE MORNING
     Route: 048
     Dates: start: 20200606
  16. NEVIRAPINE. [Concomitant]
     Active Substance: NEVIRAPINE
     Indication: HIV INFECTION
     Dosage: ONE TABLET IN THE MORNING
     Route: 048
     Dates: start: 20190918, end: 20200606
  17. COTRIMOXAZOLE [Concomitant]
     Active Substance: SULFAMETHOXAZOLE\TRIMETHOPRIM
     Dosage: ONE TABLET IN THE MORNING
     Route: 048
     Dates: start: 20190513

REACTIONS (4)
  - Hepatitis C [Recovered/Resolved]
  - Hypersensitivity [Recovered/Resolved]
  - Intentional product use issue [Unknown]
  - Off label use [Unknown]

NARRATIVE: CASE EVENT DATE: 20200406
